FAERS Safety Report 13208207 (Version 4)
Quarter: 2019Q3

REPORT INFORMATION
  Report Type: Spontaneous
  Country: US (occurrence: US)
  Receive Date: 20170209
  Receipt Date: 20190712
  Transmission Date: 20191004
  Serious: Yes (Other)
  Sender: FDA-Public Use
  Company Number: US-VIFOR (INTERNATIONAL) INC.-VIT-2017-01081

PATIENT
  Age: 56 Year
  Sex: Female
  Weight: 68.1 kg

DRUGS (21)
  1. CALCIUM ACETATE. [Concomitant]
     Active Substance: CALCIUM ACETATE
  2. CARVEDILOL. [Concomitant]
     Active Substance: CARVEDILOL
  3. DOCUSATE SODIUM. [Concomitant]
     Active Substance: DOCUSATE SODIUM
  4. ATORVASTATIN CALCIUM. [Concomitant]
     Active Substance: ATORVASTATIN CALCIUM
  5. LEVEMIR [Concomitant]
     Active Substance: INSULIN DETEMIR
  6. SERTRALINE HCL [Concomitant]
     Active Substance: SERTRALINE HYDROCHLORIDE
  7. TRADJENTA [Concomitant]
     Active Substance: LINAGLIPTIN
  8. VITAMIN D [Concomitant]
     Active Substance: VITAMIN D NOS
  9. AFEDITAB CR [Concomitant]
     Active Substance: NIFEDIPINE
  10. VELTASSA [Suspect]
     Active Substance: PATIROMER
     Route: 048
     Dates: start: 20160807
  11. CRESTOR [Concomitant]
     Active Substance: ROSUVASTATIN CALCIUM
  12. RENA-VITE [Concomitant]
     Active Substance: ASCORBIC ACID\BIOTIN\CALCIUM PANTOTHENATE\CYANOCOBALAMIN\FOLIC ACID\NIACINAMIDE\PYRIDOXINE HYDROCHLORIDE\RIBOFLAVIN\THIAMINE MONONITRATE
  13. SENSIPAR [Concomitant]
     Active Substance: CINACALCET HYDROCHLORIDE
  14. ACETAMINOPHEN. [Concomitant]
     Active Substance: ACETAMINOPHEN
  15. HUMALOG MIX [Concomitant]
     Active Substance: INSULIN LISPRO
     Dosage: 50/50
  16. FUROSEMIDE. [Concomitant]
     Active Substance: FUROSEMIDE
  17. VELTASSA [Suspect]
     Active Substance: PATIROMER
     Indication: HYPERKALAEMIA
     Route: 048
     Dates: start: 201607
  18. NIFEDIPINE. [Concomitant]
     Active Substance: NIFEDIPINE
  19. RENVELA [Concomitant]
     Active Substance: SEVELAMER CARBONATE
  20. COENZYME Q10 [Concomitant]
     Active Substance: UBIDECARENONE
  21. LANTUS [Concomitant]
     Active Substance: INSULIN GLARGINE

REACTIONS (3)
  - Dizziness [Unknown]
  - Dry mouth [Not Recovered/Not Resolved]
  - Spinal operation [Unknown]

NARRATIVE: CASE EVENT DATE: 201611
